FAERS Safety Report 6270691-1 (Version None)
Quarter: 2009Q3

REPORT INFORMATION
  Report Type: 
  Country: None (occurrence: None)
  Receive Date: 20090716
  Receipt Date: 20090708
  Transmission Date: 20100115
  Serious: Yes (Life-Threatening)
  Sender: FDA-Public Use
  Company Number: JP-GILEAD-2009-0023011

PATIENT
  Sex: Male

DRUGS (5)
  1. VIREAD [Suspect]
     Indication: HIV INFECTION
     Route: 048
     Dates: start: 20040831, end: 20090406
  2. EPIVIR [Suspect]
     Indication: HIV INFECTION
     Route: 048
     Dates: start: 20050402, end: 20090406
  3. EPIVIR [Suspect]
     Route: 048
     Dates: start: 20040831, end: 20050401
  4. REYATAZ [Suspect]
     Indication: HIV INFECTION
     Route: 048
     Dates: start: 20040831, end: 20090406
  5. NORVIR [Suspect]
     Indication: HIV INFECTION
     Route: 048
     Dates: start: 20040831, end: 20090406

REACTIONS (2)
  - INTRACRANIAL TUMOUR HAEMORRHAGE [None]
  - SUBDURAL HAEMATOMA [None]
